FAERS Safety Report 21053901 (Version 1)
Quarter: 2022Q3

REPORT INFORMATION
  Report Type: Spontaneous
  Country: US (occurrence: US)
  Receive Date: 20220707
  Receipt Date: 20220707
  Transmission Date: 20221027
  Serious: No
  Sender: FDA-Public Use
  Company Number: US-PFIZER INC-202200915963

PATIENT
  Age: 39 Year
  Sex: Male
  Weight: 78.47 kg

DRUGS (3)
  1. XELJANZ XR [Suspect]
     Active Substance: TOFACITINIB CITRATE
     Indication: Ankylosing spondylitis
     Dosage: 22 MG, 1X/DAY
     Dates: start: 20220616
  2. XELJANZ XR [Suspect]
     Active Substance: TOFACITINIB CITRATE
     Indication: Colitis ulcerative
  3. XELJANZ XR [Suspect]
     Active Substance: TOFACITINIB CITRATE
     Indication: Arthritis

REACTIONS (3)
  - Influenza [Unknown]
  - Cough [Unknown]
  - Influenza like illness [Unknown]

NARRATIVE: CASE EVENT DATE: 20220601
